FAERS Safety Report 6130524-0 (Version None)
Quarter: 2009Q1

REPORT INFORMATION
  Report Type: 
  Country: None (occurrence: None)
  Receive Date: 20090323
  Receipt Date: 20090317
  Transmission Date: 20090719
  Serious: Yes (Hospitalization, Other)
  Sender: FDA-Public Use
  Company Number: 2008JP005867

PATIENT
  Age: 10 Year
  Sex: Male
  Weight: 38.5 kg

DRUGS (15)
  1. PROGRAF [Suspect]
     Indication: NEPHROTIC SYNDROME
     Dosage: 3 MG, BID, ORAL; 2 MG, BID, ORAL
     Route: 048
     Dates: start: 20081023, end: 20081201
  2. PROGRAF [Suspect]
     Indication: NEPHROTIC SYNDROME
     Dosage: 3 MG, BID, ORAL; 2 MG, BID, ORAL
     Route: 048
     Dates: start: 20081202, end: 20081217
  3. PROGRAF [Suspect]
     Indication: NEPHROTIC SYNDROME
     Dosage: 3 MG, BID, ORAL; 2 MG, BID, ORAL
     Route: 048
     Dates: start: 20081218, end: 20090130
  4. NICARDIPINE HCL [Suspect]
     Indication: HYPERTENSION
     Dosage: CONTINUOUS, IV DRIP
     Route: 041
     Dates: start: 20081118, end: 20081126
  5. NICARDIPINE HCL [Suspect]
     Indication: HYPERTENSION
     Dosage: CONTINUOUS, IV DRIP
     Route: 041
     Dates: start: 20081202, end: 20081215
  6. BREDININ (MIZORIBINE) PER ORAL NOS [Concomitant]
  7. GASTER (FAMOTIDINE) FORMULATION UNKNOWN [Concomitant]
  8. SEPAMIT-R PER ORAL NOS [Concomitant]
  9. ALFAROL (ALFACALCIDOL) PER ORAL NOS [Concomitant]
  10. MEVALOTIN (PRAVASTATIN SODIUM) PER ORAL NOS [Concomitant]
  11. LONGES (LISINOPRIL) PER ORAL NOS [Concomitant]
  12. PREDNISOLONE [Concomitant]
  13. PREDNISOLONE [Concomitant]
  14. LANSOPRAZOLE [Concomitant]
  15. SOLU-MEDROL [Concomitant]

REACTIONS (3)
  - BETA 2 MICROGLOBULIN URINE INCREASED [None]
  - OTITIS MEDIA [None]
  - TUBULOINTERSTITIAL NEPHRITIS [None]
